FAERS Safety Report 6250868-1 (Version None)
Quarter: 2009Q2

REPORT INFORMATION
  Report Type: 
  Country: None (occurrence: None)
  Receive Date: 20090630
  Receipt Date: 20090617
  Transmission Date: 20091009
  Serious: Yes (Congenital Anomaly, Other)
  Sender: FDA-Public Use
  Company Number: IL-TYCO HEALTHCARE/MALLINCKRODT-T200901223

PATIENT

DRUGS (1)
  1. FLUOXETINE HCL [Suspect]
     Route: 064

REACTIONS (3)
  - BICUSPID AORTIC VALVE [None]
  - CONGENITAL AORTIC VALVE STENOSIS [None]
  - DRUG EXPOSURE DURING PREGNANCY [None]
